FAERS Safety Report 7702978-7 (Version None)
Quarter: 2011Q3

REPORT INFORMATION
  Report Type: 
  Country: None (occurrence: None)
  Receive Date: 20110823
  Receipt Date: 20110811
  Transmission Date: 20111222
  Serious: No
  Sender: FDA-Public Use
  Company Number: US-JNJFOC-20110806386

PATIENT
  Age: 37 Year
  Sex: Male

DRUGS (3)
  1. LEXAPRO [Concomitant]
     Indication: SCHIZOAFFECTIVE DISORDER
     Route: 048
  2. INVEGA SUSTENNA [Suspect]
     Indication: SCHIZOAFFECTIVE DISORDER
     Route: 030
     Dates: start: 20110101, end: 20110801
  3. INVEGA [Concomitant]
     Indication: SCHIZOAFFECTIVE DISORDER
     Route: 065

REACTIONS (4)
  - MUSCULOSKELETAL STIFFNESS [None]
  - EXTRAPYRAMIDAL DISORDER [None]
  - DRUG PRESCRIBING ERROR [None]
  - INCORRECT DOSE ADMINISTERED [None]
